FAERS Safety Report 22904152 (Version 3)
Quarter: 2025Q3

REPORT INFORMATION
  Report Type: Report from Study
  Country: US (occurrence: US)
  Receive Date: 20230905
  Receipt Date: 20250818
  Transmission Date: 20251021
  Serious: Yes (Hospitalization, Other)
  Sender: NOVARTIS
  Company Number: US-002147023-NVSC2023US191350

PATIENT
  Sex: Female

DRUGS (4)
  1. KESIMPTA [Suspect]
     Active Substance: OFATUMUMAB
     Indication: Relapsing multiple sclerosis
     Dosage: 20 MG (4 ML), QMO
     Route: 058
     Dates: start: 20211201
  2. KESIMPTA [Suspect]
     Active Substance: OFATUMUMAB
     Dosage: 20 MG, QMO
     Route: 058
     Dates: start: 20211208
  3. AMOXICILLIN [Suspect]
     Active Substance: AMOXICILLIN
     Indication: Product used for unknown indication
     Route: 065
  4. PENICILLIN [Suspect]
     Active Substance: PENICILLIN
     Indication: Product used for unknown indication
     Route: 065

REACTIONS (10)
  - Pulmonary thrombosis [Unknown]
  - Productive cough [Unknown]
  - Oxygen saturation decreased [Unknown]
  - Pulmonary mass [Unknown]
  - Thrombosis [Unknown]
  - Peripheral swelling [Unknown]
  - Pneumonia [Unknown]
  - Multiple sclerosis relapse [Unknown]
  - Drug hypersensitivity [Unknown]
  - Contusion [Unknown]
